FAERS Safety Report 11499763 (Version 1)
Quarter: 2015Q3

REPORT INFORMATION
  Report Type: Spontaneous
  Country: US (occurrence: None)
  Receive Date: 20150910
  Receipt Date: 20150910
  Transmission Date: 20151125
  Serious: No
  Sender: FDA-Public Use
  Company Number: None

PATIENT
  Age: 76 Year
  Sex: Female
  Weight: 134 kg

DRUGS (5)
  1. LEVOFLOXACIN LUPIN PHARMACEUTICAL [Suspect]
     Active Substance: LEVOFLOXACIN
     Indication: BRONCHIECTASIS
     Route: 048
     Dates: start: 20150805, end: 20150818
  2. ATENOLOL. [Concomitant]
     Active Substance: ATENOLOL
  3. LIPITOR [Concomitant]
     Active Substance: ATORVASTATIN CALCIUM
  4. FISH OIL [Concomitant]
     Active Substance: FISH OIL
  5. ONE A DAY D [Concomitant]

REACTIONS (4)
  - Tendon pain [None]
  - Mobility decreased [None]
  - Arthropathy [None]
  - Myalgia [None]

NARRATIVE: CASE EVENT DATE: 20150808
